FAERS Safety Report 7963247-3 (Version None)
Quarter: 2011Q4

REPORT INFORMATION
  Report Type: 
  Country: None (occurrence: None)
  Receive Date: 20111208
  Receipt Date: 20111130
  Transmission Date: 20120403
  Serious: No
  Sender: FDA-Public Use
  Company Number: US-BIOGENIDEC-2011BI018725

PATIENT
  Age: 41 Year
  Sex: Female

DRUGS (5)
  1. CYMBALTA [Concomitant]
     Indication: ARTHRALGIA
     Dates: start: 20040101
  2. TYSABRI [Suspect]
     Indication: MULTIPLE SCLEROSIS
     Route: 042
     Dates: start: 20110401
  3. XANAX [Concomitant]
     Indication: ANXIETY
     Dates: start: 20090101
  4. STEROIDS (NOS) [Concomitant]
     Indication: PREMEDICATION
     Dates: start: 20110601, end: 20110801
  5. BENADRYL [Concomitant]
     Indication: PREMEDICATION

REACTIONS (4)
  - PRURITUS ALLERGIC [None]
  - FATIGUE [None]
  - BALANCE DISORDER [None]
  - HYPERSENSITIVITY [None]
